FAERS Safety Report 6987814-9 (Version None)
Quarter: 2010Q3

REPORT INFORMATION
  Report Type: 
  Country: None (occurrence: None)
  Receive Date: 20100830
  Receipt Date: 20090702
  Transmission Date: 20110219
  Serious: Yes (Hospitalization)
  Sender: FDA-Public Use
  Company Number: CIP09001785

PATIENT
  Age: 83 Year
  Sex: Male

DRUGS (4)
  1. ASACOL [Suspect]
     Indication: COLITIS ULCERATIVE
     Dosage: 1600 MG THREE TIMES DAILY, ORAL; 1600 MG THREE TIMES DAILY, ORAL
     Route: 048
     Dates: end: 20090602
  2. ASACOL [Suspect]
     Indication: COLITIS ULCERATIVE
     Dosage: 1600 MG THREE TIMES DAILY, ORAL; 1600 MG THREE TIMES DAILY, ORAL
     Route: 048
     Dates: start: 20090605, end: 20090614
  3. MULTIVITAMIN /00831701/ (VITAMINS NOS) [Concomitant]
  4. MERCAPTOPURINE [Concomitant]

REACTIONS (4)
  - ABDOMINAL PAIN [None]
  - GASTROINTESTINAL HAEMORRHAGE [None]
  - PANCYTOPENIA [None]
  - RECTAL HAEMORRHAGE [None]
